FAERS Safety Report 15098861 (Version 5)
Quarter: 2018Q3

REPORT INFORMATION
  Report Type: Report from Study
  Country: US (occurrence: US)
  Receive Date: 20180702
  Receipt Date: 20180803
  Transmission Date: 20181010
  Serious: Yes (Hospitalization)
  Sender: FDA-Public Use
  Company Number: US-PFIZER INC-2018251477

PATIENT
  Age: 2 Year
  Sex: Male
  Weight: 11.3 kg

DRUGS (23)
  1. LIPOSYN [Suspect]
     Active Substance: SAFFLOWER OIL
     Indication: LIPIDS ABNORMAL
     Dosage: 126.25 MG, 1 TIME PER DAY
     Route: 042
     Dates: start: 201801, end: 20180530
  2. TRIAMCINOLONE [Concomitant]
     Active Substance: TRIAMCINOLONE
     Dosage: UNK UNK, 3 TIMES A DAY
     Route: 061
     Dates: start: 20180608
  3. FLOVENT [Concomitant]
     Active Substance: FLUTICASONE PROPIONATE
     Indication: BRONCHOPULMONARY DISEASE
     Dosage: FLOVENT INHALER 2 PUFFS ORALLY 2 TIMES A DAY
     Route: 055
  4. DESITIN /00156514/ [Concomitant]
     Indication: DERMATITIS DIAPER
     Dosage: APPLY TOPICALLY AS OFTEN AS NECESSARY
     Route: 061
  5. MICONAZOLE. [Concomitant]
     Active Substance: MICONAZOLE
     Dosage: APPLY TO AFFECTED AREA 2 TIMES A DAY AS NEEDED APPLY TO BOTTOM
  6. XOPENEX [Concomitant]
     Active Substance: LEVALBUTEROL HYDROCHLORIDE
     Indication: DYSPNOEA
     Dosage: 1 NEBULE 1.25 MG, EVERY 4 HOURS AS NEEDED
  7. 5?FU [Suspect]
     Active Substance: FLUOROURACIL
     Indication: HEPATOBLASTOMA
     Dosage: 600 MG/M2/DOSE, IV OVER 2?4 MIN ON DAY 2
     Route: 042
     Dates: start: 20180518, end: 20180518
  8. SINGULAIR [Concomitant]
     Active Substance: MONTELUKAST SODIUM
     Indication: HYPERSENSITIVITY
     Dosage: 4 MG, BY GASTROSTOMY TUBE EVERY NIGHT AT BEDTIME
  9. SODIUM CHLORIDE. [Concomitant]
     Active Substance: SODIUM CHLORIDE
     Indication: COUGH
     Dosage: SODIUM CHLORIDE INHALATION 3 ML, BY NEBULIZATION EVERY 2 HOURS AS NEEDED
     Route: 055
  10. XOPENEX [Concomitant]
     Active Substance: LEVALBUTEROL HYDROCHLORIDE
     Indication: WHEEZING
     Dosage: INHALE 2 PUFFS ORALLY EVERY 4 TO 6 HOURS AS NEEDED
     Route: 048
  11. ZINECARD [Suspect]
     Active Substance: DEXRAZOXANE HYDROCHLORIDE
     Indication: HEPATOBLASTOMA
     Dosage: 300 MG/M2/DOSE, IV OVER 5?15 MIN ON DAYS 1 AND 2 IMMEDIATELY PRIOR TO DOXORUBICIN ON DAYS 1 AND 2
     Route: 042
     Dates: start: 20180517, end: 20180518
  12. ACETAMINOPHEN. [Concomitant]
     Active Substance: ACETAMINOPHEN
     Indication: PAIN
     Dosage: 80 MG, BY GASTROSTOMY TUBE EVERY 4 HOURS AS NEEDED
  13. OXYCODONE [Concomitant]
     Active Substance: OXYCODONE
     Indication: PAIN
     Dosage: 1 MG, BY GASTROSTOMY TUBE EVERY 4 HOURS AS NEEDED
  14. SMOFLIPID [Concomitant]
     Active Substance: FISH OIL\MEDIUM-CHAIN TRIGLYCERIDES\OLIVE OIL\SOYBEAN OIL
     Indication: LIPIDS
     Dosage: 110 ML, DAILY
     Route: 042
     Dates: start: 20180530
  15. TEMSIROLIMUS [Suspect]
     Active Substance: TEMSIROLIMUS
     Indication: HEPATOBLASTOMA
     Dosage: 35 MG/M2/DOSE, IV OVER 30 MIN ON DAYS 1 AND 8
     Route: 042
     Dates: start: 20171028, end: 20180409
  16. IMODIUM [Concomitant]
     Active Substance: LOPERAMIDE HYDROCHLORIDE
     Indication: DIARRHOEA
     Dosage: 0.5 MG, BY GASTROSTOMY TUBE EVERY 3 HOURS AS NEEDED
  17. XOPENEX [Concomitant]
     Active Substance: LEVALBUTEROL HYDROCHLORIDE
     Indication: COUGH
  18. VINCRISTINE SULFATE. [Suspect]
     Active Substance: VINCRISTINE SULFATE
     Indication: HEPATOBLASTOMA
     Dosage: 1.5 MG/M2/DOSE, IV OVER 1 MIN OR INFUSION VIA MINIBAG ON DAYS 2, 9, AND 16 (DAY 16 ON HELD)
     Route: 042
     Dates: start: 20171028, end: 20180525
  19. DOXORUBICIN HCL [Suspect]
     Active Substance: DOXORUBICIN HYDROCHLORIDE
     Indication: HEPATOBLASTOMA
     Dosage: 30 MG/M2/DOSE, IV OVER 15 MIN ON DAYS 1 AND 2
     Route: 042
     Dates: start: 20180517, end: 20180518
  20. CISPLATIN. [Suspect]
     Active Substance: CISPLATIN
     Indication: HEPATOBLASTOMA
     Dosage: 100 MG/M2/DOSE, IV OVER 6 HOURS ON DAY 1
     Route: 042
     Dates: start: 20180517, end: 20180517
  21. ZOFRAN [Concomitant]
     Active Substance: ONDANSETRON HYDROCHLORIDE
     Indication: NAUSEA
     Dosage: 1.664 MG, BY GASTROSTOMY TUBE EVERY 6 HOURS AS NEEDED
  22. ZYRTEC [Concomitant]
     Active Substance: CETIRIZINE HYDROCHLORIDE
     Indication: HYPERSENSITIVITY
     Dosage: 5 ML, GASTROSTOMY TUBE EVER NIGHT AT BEDTIME
  23. URSODIOL. [Concomitant]
     Active Substance: URSODIOL
     Indication: BLOOD BILIRUBIN INCREASED
     Dosage: 1.933 ML BY GT 2 TIMES A DAY
     Dates: start: 20180530

REACTIONS (2)
  - Blood bilirubin increased [Recovering/Resolving]
  - Portal vein thrombosis [Recovering/Resolving]

NARRATIVE: CASE EVENT DATE: 20180621
